FAERS Safety Report 20663934 (Version 1)
Quarter: 2022Q2

REPORT INFORMATION
  Report Type: Report from Study
  Country: US (occurrence: US)
  Receive Date: 20220401
  Receipt Date: 20220401
  Transmission Date: 20220721
  Serious: Yes (Death, Hospitalization, Other)
  Sender: FDA-Public Use
  Company Number: US-NOVARTISPH-NVSC2022US073318

PATIENT
  Sex: Female

DRUGS (1)
  1. AFINITOR [Suspect]
     Active Substance: EVEROLIMUS
     Indication: Angiomyolipoma
     Dosage: 10 MG, QD
     Route: 048
     Dates: start: 20160729

REACTIONS (4)
  - Death [Fatal]
  - Blood pressure increased [Unknown]
  - Cystitis [Unknown]
  - Acute kidney injury [Unknown]
